FAERS Safety Report 7539353-4 (Version None)
Quarter: 2011Q2

REPORT INFORMATION
  Report Type: 
  Country: None (occurrence: None)
  Receive Date: 20110610
  Receipt Date: 20110602
  Transmission Date: 20111010
  Serious: Yes (Other)
  Sender: FDA-Public Use
  Company Number: US-JNJFOC-20110405041

PATIENT
  Sex: Female

DRUGS (4)
  1. NUCYNTA [Suspect]
     Indication: POSTOPERATIVE ANALGESIA
     Dosage: 50 MG ONCE IN 6 HOURS
     Route: 048
     Dates: start: 20110126, end: 20110221
  2. TRAMADOL HCL [Suspect]
     Indication: PRODUCT USED FOR UNKNOWN INDICATION
     Route: 065
  3. SYNTHROID [Concomitant]
     Indication: HYPOTHYROIDISM
     Dosage: 75 UG
     Route: 065
  4. PROZAC [Suspect]
     Indication: PRODUCT USED FOR UNKNOWN INDICATION
     Dosage: 40 G PER DAY
     Route: 065

REACTIONS (2)
  - SEROTONIN SYNDROME [None]
  - ANXIETY [None]
